FAERS Safety Report 12667250 (Version 1)
Quarter: 2016Q3

REPORT INFORMATION
  Report Type: Spontaneous
  Country: US (occurrence: None)
  Receive Date: 20160818
  Receipt Date: 20160818
  Transmission Date: 20161109
  Serious: No
  Sender: FDA-Public Use
  Company Number: None

PATIENT
  Age: 68 Year
  Sex: Female
  Weight: 69.85 kg

DRUGS (1)
  1. AMLODIPINE BESYLATE 2.5 ML [Suspect]
     Active Substance: AMLODIPINE BESYLATE
     Indication: BLOOD PRESSURE MEASUREMENT
     Route: 048
     Dates: start: 20160518

REACTIONS (11)
  - Muscular weakness [None]
  - Blood pressure fluctuation [None]
  - Dizziness [None]
  - Asthenia [None]
  - Limb discomfort [None]
  - Pain in extremity [None]
  - Electrocardiogram abnormal [None]
  - Decreased activity [None]
  - Adverse reaction [None]
  - Activities of daily living impaired [None]
  - Palpitations [None]

NARRATIVE: CASE EVENT DATE: 20160610
